FAERS Safety Report 9636163 (Version 2)
Quarter: 2013Q4

REPORT INFORMATION
  Report Type: Spontaneous
  Country: TH (occurrence: None)
  Receive Date: 20131017
  Receipt Date: 20131023
  Transmission Date: 20140711
  Serious: Yes (Death, Life-Threatening, Hospitalization)
  Sender: FDA-Public Use
  Company Number: SYM-2013-11568

PATIENT
  Age: 52 Year
  Sex: Female

DRUGS (9)
  1. FLUOROURACIL [Suspect]
     Indication: COLORECTAL CANCER METASTATIC
  2. AFLIBERCEPT (AFLIBERCEPT) (SOLUTION FOR INFUSION) (AFLIBERCEPT) [Suspect]
     Indication: COLORECTAL CANCER METASTATIC
  3. IRINOTECAN (IRINOTECAN) (SOLUTION FOR INFUSION) (IRINOTECAN) [Suspect]
     Indication: COLORECTAL CANCER METASTATIC
     Dosage: EVERY OTHER WEEK, INTRAVENOUS DRIP
     Dates: start: 20130813, end: 20130813
  4. LEUCOVORIN (FOLINIC ACID) (SOLUTION FOR INFUSION) (FOLINIC ACID) [Suspect]
     Indication: COLORECTAL CANCER METASTATIC
     Dates: start: 20130813, end: 20130813
  5. ACE INHIBITORS AND DIURETICS (ACE INHIBITORS AND DIURETICS_ [Concomitant]
  6. CORTICOSTEROIDS (CORTICOSTEROIDS) [Concomitant]
  7. SEROTONIN ANTAGONIST (SEROTONIN ANTAGONIST) [Concomitant]
  8. ANTICHOLINERGICS (ANTICHOLINERGICS) [Concomitant]
  9. LOPERAMIDE (LOPERAMIDE)(LOPERAMIDE) [Concomitant]

REACTIONS (9)
  - Septic shock [None]
  - Diarrhoea [None]
  - Vomiting [None]
  - Pyrexia [None]
  - Fatigue [None]
  - Blood pressure decreased [None]
  - Febrile neutropenia [None]
  - Renal failure acute [None]
  - White blood cell count decreased [None]
